FAERS Safety Report 5061882-6 (Version None)
Quarter: 2006Q3

REPORT INFORMATION
  Report Type: 
  Country: None (occurrence: None)
  Receive Date: 20060726
  Receipt Date: 20060417
  Transmission Date: 20061208
  Serious: Yes (Other)
  Sender: FDA-Public Use
  Company Number: PHEH2006US04996

PATIENT
  Age: 35 Year
  Sex: Female
  Weight: 50 kg

DRUGS (3)
  1. EXJADE [Suspect]
     Indication: HAEMOSIDEROSIS
     Dosage: UNK, UNK
     Dates: start: 20060309, end: 20060404
  2. ATENOLOL [Concomitant]
     Indication: ARRHYTHMIA
     Dosage: 25 MG, QD
     Route: 048
  3. ACTINAL [Concomitant]
     Indication: OSTEOPOROSIS

REACTIONS (9)
  - ABDOMINAL PAIN UPPER [None]
  - ALANINE AMINOTRANSFERASE INCREASED [None]
  - ASPARTATE AMINOTRANSFERASE INCREASED [None]
  - BLOOD BILIRUBIN INCREASED [None]
  - EOSINOPHIL PERCENTAGE INCREASED [None]
  - HEPATITIS [None]
  - HEPATITIS B ANTIBODY POSITIVE [None]
  - HEPATITIS C ANTIBODY POSITIVE [None]
  - LIVER FUNCTION TEST ABNORMAL [None]
